FAERS Safety Report 12146610 (Version 1)
Quarter: 2016Q1

REPORT INFORMATION
  Report Type: Spontaneous
  Country: DE (occurrence: DE)
  Receive Date: 20160304
  Receipt Date: 20160304
  Transmission Date: 20160526
  Serious: Yes (Other)
  Sender: FDA-Public Use
  Company Number: DE-MYLANLABS-2016M1009404

PATIENT

DRUGS (2)
  1. CLONIDINE. [Suspect]
     Active Substance: CLONIDINE
     Indication: PRODUCT USED FOR UNKNOWN INDICATION
     Route: 065
  2. DRONABINOL. [Suspect]
     Active Substance: DRONABINOL
     Indication: VOMITING
     Route: 065

REACTIONS (3)
  - Hypotonia [Unknown]
  - Vomiting [Recovered/Resolved]
  - Condition aggravated [Recovered/Resolved]
